FAERS Safety Report 21284458 (Version 3)
Quarter: 2023Q1

REPORT INFORMATION
  Report Type: Spontaneous
  Country: FR (occurrence: FR)
  Receive Date: 20220902
  Receipt Date: 20230113
  Transmission Date: 20230418
  Serious: Yes (Other)
  Sender: FDA-Public Use
  Company Number: FR-AFSSAPS-AN20221913

PATIENT
  Age: 76 Year
  Sex: Male
  Weight: 81 kg

DRUGS (19)
  1. ISTODAX [Suspect]
     Active Substance: ROMIDEPSIN
     Indication: Cutaneous T-cell lymphoma
     Route: 041
     Dates: start: 20220221
  2. FUROSEMIDE [Suspect]
     Active Substance: FUROSEMIDE
     Indication: Hypertension
     Dosage: ONE TABLET IN THE MORNING
     Route: 048
     Dates: start: 202101
  3. HYDROCORTISONE [Suspect]
     Active Substance: HYDROCORTISONE
     Indication: Cortisol decreased
     Dosage: TWO IN THE MORNING
     Route: 048
     Dates: start: 202111
  4. JANUVIA [Suspect]
     Active Substance: SITAGLIPTIN PHOSPHATE
     Indication: Type 2 diabetes mellitus
     Dosage: ONCE IN THE MORNING
     Route: 048
     Dates: start: 2019
  5. CYANOCOBALAMIN [Suspect]
     Active Substance: CYANOCOBALAMIN
     Indication: Vitamin B12 deficiency
     Dosage: TWO AMPOULES WEEKLY, 1000 MICROG / 2 ML ORAL SOLUTION
     Route: 048
     Dates: start: 202112
  6. VENLAFAXINE [Suspect]
     Active Substance: VENLAFAXINE HYDROCHLORIDE
     Indication: Depression
     Dosage: ONCE IN THE MORNING
     Route: 048
     Dates: start: 202101
  7. CLOPIDOGREL [Suspect]
     Active Substance: CLOPIDOGREL BISULFATE
     Indication: Cardiovascular event prophylaxis
     Dosage: ONCE IN THE MORNING
     Route: 048
     Dates: start: 2019
  8. POTASSIUM CHLORIDE [Suspect]
     Active Substance: POTASSIUM CHLORIDE
     Indication: Hypokalaemia
     Dosage: TWO TABLETS IN THE MORNING, ONE AT MIDDAY
     Route: 048
     Dates: start: 202101
  9. PENICILLIN V BENZATHINE [Suspect]
     Active Substance: PENICILLIN V BENZATHINE
     Indication: Antibiotic prophylaxis
     Dosage: 1000000 IU
     Route: 048
     Dates: start: 202112
  10. LEVOTHYROXINE [Suspect]
     Active Substance: LEVOTHYROXINE
     Indication: Thyroid disorder
     Dosage: ONCE IN THE MORNING
     Route: 048
     Dates: start: 202106
  11. ATORVASTATIN [Suspect]
     Active Substance: ATORVASTATIN
     Indication: Dyslipidaemia
     Dosage: ONCE IN THE EVENING
     Route: 048
     Dates: start: 202108
  12. ACETAMINOPHEN [Suspect]
     Active Substance: ACETAMINOPHEN
     Indication: Pain
     Dosage: 1 G,  ONE TABLET EVERY 8 H
     Route: 048
     Dates: start: 202101
  13. IPRATROPIUM BROMIDE\FENOTEROL HYDROBROMIDE [Suspect]
     Active Substance: FENOTEROL HYDROBROMIDE\IPRATROPIUM BROMIDE
     Indication: Chronic obstructive pulmonary disease
     Dosage: 50 MICROG / 20 MICROG PER DOSE (INNS: FENOTEROL HYDROBROMIDE / IPRATROPIUM BROMIDE) TWO PUFFS IN THE
     Route: 055
     Dates: start: 202112
  14. BISOPROLOL [Suspect]
     Active Substance: BISOPROLOL
     Indication: Hypertension
     Dosage: ONE TABLET IN THE MORNING
     Route: 048
     Dates: start: 2019
  15. CHOLECALCIFEROL [Suspect]
     Active Substance: CHOLECALCIFEROL
     Indication: Vitamin D deficiency
     Dosage: IN AMPOULES
     Route: 048
     Dates: start: 2019
  16. AMLODIPINE BESYLATE [Suspect]
     Active Substance: AMLODIPINE BESYLATE
     Indication: Hypertension
     Dosage: ONCE IN THE MORNING
     Route: 048
     Dates: start: 2019
  17. GLYCERIN\MINERAL OIL\PETROLATUM [Suspect]
     Active Substance: GLYCERIN\MINERAL OIL\PETROLATUM
     Indication: Product used for unknown indication
     Dosage: ONE DAILY APPLICATION ON THE WHOLE BODY, 2 TUBES WEEKLY.
     Dates: start: 202112
  18. CARBOXYMETHYLCELLULOSE SODIUM\GLYCERIN [Suspect]
     Active Substance: CARBOXYMETHYLCELLULOSE SODIUM\GLYCERIN
     Indication: Product used for unknown indication
     Dosage: LUBRICATING  AND  OSMOPROTECTIVE  OCULAR  SOLUTION 1-2 DROPS PER DAY DEPENDING ON DISCOMFORT
     Dates: start: 202101
  19. CLOBETASOL PROPIONATE [Concomitant]
     Active Substance: CLOBETASOL PROPIONATE
     Indication: Pruritus
     Dosage: 2 TUBES WEEKLY: ONE WEEKLY APPLICATION ON THE WHOLE BODY, SPACE OUT APPLICATIONS FOR FEW DAYS, EVEN
     Dates: start: 202112

REACTIONS (1)
  - Mouth ulceration [Recovering/Resolving]

NARRATIVE: CASE EVENT DATE: 20220725
